FAERS Safety Report 14758403 (Version 1)
Quarter: 2018Q2

REPORT INFORMATION
  Report Type: Spontaneous
  Country: US (occurrence: US)
  Receive Date: 20180409
  Receipt Date: 20180409
  Transmission Date: 20180711
  Serious: No
  Sender: FDA-Public Use
  Company Number: None

PATIENT
  Age: 65 Year
  Sex: Female
  Weight: 57.61 kg

DRUGS (11)
  1. COD LIVER OIL [Concomitant]
     Active Substance: COD LIVER OIL
  2. BILBERRY [Concomitant]
     Active Substance: BILBERRY
  3. LATANOPROST OPHTHALMIC SOLUTION 0.005% 125UG/2.5ML [Suspect]
     Active Substance: LATANOPROST
     Indication: NORMAL TENSION GLAUCOMA
     Dosage: ?          OTHER STRENGTH:125/2.5 UG/ML;QUANTITY:1 GTT DROP(S);?
     Route: 031
     Dates: start: 20171121, end: 20170124
  4. MULTIPLE VITAMIN [Concomitant]
     Active Substance: VITAMINS
  5. B VITAMINS [Concomitant]
     Active Substance: CYANOCOBALAMIN\DEXPANTHENOL\NIACINAMIDE\PYRIDOXINE HYDROCHLORIDE\RIBOFLAVIN 5^-PHOSPHATE SODIUM\THIAMINE HYDROCHLORIDE\VITAMIN B COMPLEX
  6. LUTEIN [Concomitant]
     Active Substance: LUTEIN
  7. MAGNESIUM [Concomitant]
     Active Substance: MAGNESIUM
  8. POTASSIUM [Concomitant]
     Active Substance: POTASSIUM
  9. VITAMIN D [Concomitant]
     Active Substance: CHOLECALCIFEROL
  10. ZEAXANTHIN [Concomitant]
     Active Substance: ZEAXANTHIN
  11. VITAMIN C [Concomitant]
     Active Substance: ASCORBIC ACID

REACTIONS (3)
  - Dyspepsia [None]
  - Abdominal discomfort [None]
  - Rash [None]

NARRATIVE: CASE EVENT DATE: 20171121
